FAERS Safety Report 10752543 (Version 1)
Quarter: 2015Q1

REPORT INFORMATION
  Report Type: Spontaneous
  Country: JP (occurrence: JP)
  Receive Date: 20150130
  Receipt Date: 20150130
  Transmission Date: 20150721
  Serious: Yes (Hospitalization, Other)
  Sender: FDA-Public Use
  Company Number: JP-BAYER-2015-010464

PATIENT
  Sex: Female

DRUGS (9)
  1. GLIBENCLAMIDE [Concomitant]
     Active Substance: GLYBURIDE
     Route: 048
  2. DIGOXIN. [Concomitant]
     Active Substance: DIGOXIN
     Route: 048
  3. LANSOPRAZOLE. [Concomitant]
     Active Substance: LANSOPRAZOLE
     Route: 048
  4. AMITRIPTYLINE HYDROCHLORIDE. [Concomitant]
     Active Substance: AMITRIPTYLINE HYDROCHLORIDE
     Route: 048
  5. BISOPROLOL FUMARATE. [Concomitant]
     Active Substance: BISOPROLOL FUMARATE
     Route: 048
  6. ACETYLSALICYLIC ACID({=100 MG) [Suspect]
     Active Substance: ASPIRIN
     Route: 048
  7. ACARBOSE. [Concomitant]
     Active Substance: ACARBOSE
     Route: 048
  8. MAGNESIUM OXIDE. [Concomitant]
     Active Substance: MAGNESIUM OXIDE
     Route: 048
  9. SITAGLIPTIN PHOSPHATE [Concomitant]
     Active Substance: SITAGLIPTIN PHOSPHATE
     Route: 048

REACTIONS (7)
  - Paralysis [Recovered/Resolved]
  - Gait disturbance [Recovered/Resolved]
  - Blood potassium decreased [None]
  - Hypophagia [Recovering/Resolving]
  - Dyslalia [Recovered/Resolved]
  - Hypoglycaemia [None]
  - Diarrhoea [Recovering/Resolving]
